FAERS Safety Report 7559112-6 (Version None)
Quarter: 2011Q2

REPORT INFORMATION
  Report Type: 
  Country: None (occurrence: None)
  Receive Date: 20110613
  Receipt Date: 20110608
  Transmission Date: 20111010
  Serious: Yes (Hospitalization, Disabling, Other)
  Sender: FDA-Public Use
  Company Number: 2009-189370-NL

PATIENT
  Age: 31 Year
  Sex: Female
  Weight: 106.6 kg

DRUGS (5)
  1. NUVARING [Suspect]
     Indication: CONTRACEPTION
     Dosage: 1 DF; QM; VAG
     Route: 067
     Dates: start: 20060601, end: 20061201
  2. LEVOXYL [Concomitant]
  3. SINGULAIR [Concomitant]
  4. SYNTHROID [Concomitant]
  5. ALBUTEROL SULFATE AUTOHALER [Concomitant]

REACTIONS (25)
  - INSOMNIA [None]
  - LIMB INJURY [None]
  - SCIATICA [None]
  - MENISCUS LESION [None]
  - ANTIPHOSPHOLIPID ANTIBODIES POSITIVE [None]
  - OSTEOARTHRITIS [None]
  - PROTEINURIA [None]
  - ABASIA [None]
  - MEAN CELL VOLUME DECREASED [None]
  - DYSSTASIA [None]
  - GASTRIC ULCER [None]
  - INTERVERTEBRAL DISC PROTRUSION [None]
  - NIGHTMARE [None]
  - OVARIAN CYST RUPTURED [None]
  - ACROCHORDON [None]
  - IRON DEFICIENCY [None]
  - BLOOD ALKALINE PHOSPHATASE INCREASED [None]
  - CARPAL TUNNEL SYNDROME [None]
  - MUSCLE STRAIN [None]
  - MELANOCYTIC NAEVUS [None]
  - EPICONDYLITIS [None]
  - DEEP VEIN THROMBOSIS [None]
  - BLOOD FIBRINOGEN INCREASED [None]
  - BACK PAIN [None]
  - PLANTAR FASCIITIS [None]
